FAERS Safety Report 18419639 (Version 3)
Quarter: 2021Q1

REPORT INFORMATION
  Report Type: Spontaneous
  Country: RU (occurrence: RU)
  Receive Date: 20201023
  Receipt Date: 20210129
  Transmission Date: 20210419
  Serious: Yes (Death, Life-Threatening, Other)
  Sender: FDA-Public Use
  Company Number: NVSC2020RU284211

PATIENT
  Age: 66 Year
  Sex: Female
  Weight: 65 kg

DRUGS (14)
  1. NIMESULIDE [Concomitant]
     Active Substance: NIMESULIDE
     Indication: OSTEOARTHRITIS
     Dosage: 100 MG (AS NEEDED)
     Route: 048
     Dates: start: 2017, end: 20200909
  2. ENALAPRIL [Concomitant]
     Active Substance: ENALAPRIL
     Indication: HYPERTENSION
     Dosage: 10 MG (AS NEEDED)
     Route: 048
     Dates: start: 20200710
  3. ONDANSETRON [Suspect]
     Active Substance: ONDANSETRON
     Dosage: 4 MG, QD
     Route: 030
     Dates: start: 20201011, end: 20201011
  4. QUAMATEL [Concomitant]
     Active Substance: FAMOTIDINE
     Indication: PREMEDICATION
     Dosage: 40 MG, QD
     Route: 042
     Dates: start: 20200908, end: 20200929
  5. PACLITAXEL EBEWE [Suspect]
     Active Substance: PACLITAXEL
     Indication: CERVIX CARCINOMA
     Dosage: 175 MG/M2 (LAST INJECTION WAS DOSED AT 294 MG)
     Route: 042
     Dates: end: 20200929
  6. EUTHYROX [Concomitant]
     Active Substance: LEVOTHYROXINE SODIUM
     Indication: HYPERTHYROIDISM
     Dosage: 25 MG
     Route: 048
     Dates: start: 20200710
  7. CARBOPLATIN. [Concomitant]
     Active Substance: CARBOPLATIN
     Indication: CERVIX CARCINOMA
     Dosage: UNK (AUC 5 MG/ML/MIN)
     Route: 042
     Dates: end: 20200929
  8. KETOPROFEN. [Suspect]
     Active Substance: KETOPROFEN
     Indication: CEREBROVASCULAR ACCIDENT
     Dosage: 2 ML, QD
     Route: 030
     Dates: start: 20201011, end: 20201011
  9. FERRUM LEK [Concomitant]
     Indication: ANAEMIA
     Dosage: 100 MG, BID
     Route: 048
     Dates: start: 20200929
  10. AVASTIN [Concomitant]
     Active Substance: BEVACIZUMAB
     Indication: CERVIX CARCINOMA
     Dosage: 15 MG/KG (LAST INJECTION 1000.5 MG)
     Route: 042
     Dates: end: 20200908
  11. ONDANSETRON [Suspect]
     Active Substance: ONDANSETRON
     Indication: CEREBROVASCULAR ACCIDENT
     Dosage: 8 MG, QD
     Route: 042
     Dates: start: 20200908, end: 20200929
  12. INDAPAMIDE. [Concomitant]
     Active Substance: INDAPAMIDE
     Indication: HYPERTENSION
     Dosage: 2.5 MG
     Route: 048
     Dates: start: 20200607
  13. DEXAMETHASON [Concomitant]
     Active Substance: DEXAMETHASONE
     Indication: PREMEDICATION
     Dosage: 20 MG, QD
     Route: 042
     Dates: start: 20200908, end: 20200929
  14. DIPHENHYDRAMINE. [Concomitant]
     Active Substance: DIPHENHYDRAMINE
     Indication: PREMEDICATION
     Dosage: 50 MG, QD
     Route: 042
     Dates: start: 20200908, end: 20200929

REACTIONS (1)
  - Adrenal insufficiency [Fatal]

NARRATIVE: CASE EVENT DATE: 20201006
